FAERS Safety Report 5234495-0 (Version None)
Quarter: 2007Q1

REPORT INFORMATION
  Report Type: 
  Country: None (occurrence: None)
  Receive Date: 20070209
  Receipt Date: 20070201
  Transmission Date: 20070707
  Serious: Yes (Other)
  Sender: FDA-Public Use
  Company Number: 2007AP00618

PATIENT
  Age: 14969 Day
  Sex: Female
  Weight: 35 kg

DRUGS (17)
  1. CRESTOR [Suspect]
     Indication: HYPERCHOLESTEROLAEMIA
     Route: 048
     Dates: start: 20061016, end: 20061221
  2. TAKEPRON [Suspect]
     Indication: GASTRIC ULCER
     Route: 048
     Dates: start: 20061211, end: 20061221
  3. SG [Concomitant]
     Indication: HEADACHE
     Route: 048
     Dates: start: 20040830
  4. MYSLEE [Concomitant]
     Indication: INSOMNIA
     Route: 048
     Dates: start: 20041122
  5. CERCINE [Concomitant]
     Indication: DEPRESSION
     Route: 048
     Dates: start: 20050121
  6. LUDIOMIL [Concomitant]
     Indication: DEPRESSION
     Route: 048
     Dates: start: 20051027
  7. PHENOBARBITAL TAB [Concomitant]
     Indication: INSOMNIA
     Route: 048
     Dates: start: 20061016
  8. SOLANAX [Concomitant]
     Indication: DEPRESSION
     Route: 048
     Dates: start: 20061030, end: 20061113
  9. PRIMPERAN [Concomitant]
     Indication: GASTRITIS
     Route: 048
     Dates: start: 20061030, end: 20061221
  10. DASEN [Concomitant]
     Indication: CHRONIC SINUSITIS
     Route: 048
     Dates: start: 20061113
  11. THIATON [Concomitant]
     Indication: GASTRITIS
     Route: 048
     Dates: start: 20061127, end: 20061221
  12. LIPITOR [Concomitant]
     Dates: start: 20041001
  13. LIPITOR [Concomitant]
     Dates: start: 20050101, end: 20050901
  14. EPADEL [Concomitant]
     Dates: start: 20050901
  15. LIVALO [Concomitant]
     Dates: start: 20051124, end: 20051130
  16. CHOLEBRINE [Concomitant]
     Dates: start: 20051130, end: 20061016
  17. LOCHOL [Concomitant]
     Dates: start: 20060201, end: 20061016

REACTIONS (3)
  - ABDOMINAL PAIN UPPER [None]
  - HYPOKALAEMIA [None]
  - MYOPATHY [None]
